FAERS Safety Report 24890811 (Version 1)
Quarter: 2025Q1

REPORT INFORMATION
  Report Type: Spontaneous
  Country: CL (occurrence: CL)
  Receive Date: 20250127
  Receipt Date: 20250127
  Transmission Date: 20250409
  Serious: Yes (Death)
  Sender: ASTELLAS
  Company Number: CL-ASTELLAS-2025-AER-004804

PATIENT
  Age: 82 Year
  Sex: Female

DRUGS (2)
  1. XOSPATA [Suspect]
     Active Substance: GILTERITINIB
     Indication: Acute myeloid leukaemia
     Route: 050
  2. XOSPATA [Suspect]
     Active Substance: GILTERITINIB
     Indication: FLT3 gene mutation

REACTIONS (2)
  - Acute myeloid leukaemia [Fatal]
  - Underdose [Unknown]
